FAERS Safety Report 9728480 (Version 2)
Quarter: 2013Q4

REPORT INFORMATION
  Report Type: Report from Study
  Country: FR (occurrence: FR)
  Receive Date: 20131204
  Receipt Date: 20131204
  Transmission Date: 20140711
  Serious: Yes (Hospitalization, Other)
  Sender: FDA-Public Use
  Company Number: FR-VERTEX PHARMACEUTICALS INC-AE-2011-000758

PATIENT
  Age: 42 Year
  Sex: Male
  Weight: 68 kg

DRUGS (9)
  1. VX-950 (TELAPREVIR) [Suspect]
     Indication: HEPATITIS C
     Dosage: 750 MG, TID
     Route: 048
     Dates: start: 20110328, end: 20110621
  2. VX-950 (TELAPREVIR) [Suspect]
     Indication: HEPATIC CIRRHOSIS
  3. PEGINTERFERON ALFA-2A [Suspect]
     Indication: HEPATIC CIRRHOSIS
     Dosage: 180 ?G, QW
     Route: 058
     Dates: start: 20110328, end: 20110627
  4. PEGINTERFERON ALFA-2A [Suspect]
     Indication: HEPATITIS C
     Dosage: 135 ?G, QW
     Route: 058
     Dates: start: 20110627
  5. RIBAVIRIN [Suspect]
     Indication: HEPATIC CIRRHOSIS
     Dosage: 1000 MG, QD
     Route: 048
     Dates: start: 20110328
  6. RIBAVIRIN [Suspect]
     Indication: HEPATITIS C
  7. LANTUS [Concomitant]
     Indication: DIABETES MELLITUS
     Dosage: UNK
  8. SPIRONOLACTONE [Concomitant]
     Indication: ASCITES
     Dosage: DOSAGE FORM: TABLET
     Dates: start: 20110711
  9. LASILIX [Concomitant]
     Indication: ASCITES
     Dosage: DOSAGE FORM: TABLET
     Dates: start: 20110711

REACTIONS (4)
  - Ascites [Recovered/Resolved]
  - Anaemia [Recovered/Resolved]
  - Thrombocytopenia [Unknown]
  - Epistaxis [Unknown]
